FAERS Safety Report 5453419-4 (Version None)
Quarter: 2007Q3

REPORT INFORMATION
  Report Type: 
  Country: None (occurrence: None)
  Receive Date: 20070913
  Receipt Date: 20070830
  Transmission Date: 20080115
  Serious: Yes (Hospitalization)
  Sender: FDA-Public Use
  Company Number: JPI-P-002103

PATIENT
  Age: 28 Year
  Sex: Female
  Weight: 102.0593 kg

DRUGS (7)
  1. XYREM [Suspect]
     Indication: CATAPLEXY
     Dosage: 3 GM (1.5 GM, 2 IN 1 D), ORAL
     Route: 048
     Dates: start: 20070319, end: 20070425
  2. XYREM [Suspect]
     Indication: SLEEP APNOEA SYNDROME
     Dosage: 3 GM (1.5 GM, 2 IN 1 D), ORAL
     Route: 048
     Dates: start: 20070319, end: 20070425
  3. AMPHETAMINE MIXED SALTS (AMFETAMINE SULFATE) [Concomitant]
  4. PROTRIPTYLINE (PROTRIPTYLINE) [Concomitant]
  5. MODAFINIL [Concomitant]
  6. INDAPAMIDE [Concomitant]
  7. AMLODIPINE BESYLATE (AMLODIPINE BESILATE) [Concomitant]

REACTIONS (10)
  - AGGRESSION [None]
  - ANGER [None]
  - ANXIETY [None]
  - BLOOD PRESSURE INCREASED [None]
  - DEPRESSION [None]
  - HEART RATE INCREASED [None]
  - HOMICIDAL IDEATION [None]
  - LOSS OF CONSCIOUSNESS [None]
  - PANIC ATTACK [None]
  - SUICIDAL IDEATION [None]
